FAERS Safety Report 5380293-7 (Version None)
Quarter: 2007Q3

REPORT INFORMATION
  Report Type: 
  Country: None (occurrence: None)
  Receive Date: 20070706
  Receipt Date: 20070629
  Transmission Date: 20080115
  Serious: Yes (Death)
  Sender: FDA-Public Use
  Company Number: ES-ROCHE-504870

PATIENT
  Age: 61 Year
  Sex: Male

DRUGS (4)
  1. PEGASYS [Suspect]
     Indication: HEPATITIS C
     Route: 065
  2. RIBAVIRIN [Suspect]
     Indication: HEPATITIS C
     Route: 065
  3. CYCLOSPORINE [Concomitant]
     Dosage: INDICATION REPORTED AS TRANSPLANTED ORGAN, UNSPECIFIED.
  4. DARBEPOETIN ALFA [Concomitant]
     Dosage: MEDICATION REPORTED AS DARBEPOETIN.

REACTIONS (2)
  - HEPATOTOXICITY [None]
  - MULTI-ORGAN FAILURE [None]
